FAERS Safety Report 6246197-2 (Version None)
Quarter: 2009Q2

REPORT INFORMATION
  Report Type: 
  Country: None (occurrence: None)
  Receive Date: 20090626
  Receipt Date: 20090615
  Transmission Date: 20091009
  Serious: Yes (Death)
  Sender: FDA-Public Use
  Company Number: CA-JNJFOC-20090608278

PATIENT
  Age: 69 Year
  Sex: Male

DRUGS (3)
  1. ETOMIDATE [Suspect]
     Indication: ENDOTRACHEAL INTUBATION
     Route: 065
  2. FENTANYL [Suspect]
     Indication: ENDOTRACHEAL INTUBATION
     Route: 065
  3. SUCCINYLCHOLINE CHLORIDE [Suspect]
     Indication: ENDOTRACHEAL INTUBATION
     Route: 065

REACTIONS (1)
  - CARDIAC ARREST [None]
